FAERS Safety Report 6082385-6 (Version None)
Quarter: 2009Q1

REPORT INFORMATION
  Report Type: 
  Country: None (occurrence: None)
  Receive Date: 20090126
  Receipt Date: 20080430
  Transmission Date: 20090719
  Serious: Yes (Life-Threatening)
  Sender: FDA-Public Use
  Company Number: 274845

PATIENT
  Sex: Male

DRUGS (2)
  1. NOVOLOG [Suspect]
     Indication: DIABETES MELLITUS
     Dosage: SUBCUTANEOUS
     Route: 058
  2. LEVEMIR [Suspect]
     Indication: DIABETES MELLITUS
     Dosage: SUBCUTANEOUS
     Route: 058

REACTIONS (1)
  - HYPOGLYCAEMIC UNCONSCIOUSNESS [None]
